FAERS Safety Report 5299541-7 (Version None)
Quarter: 2007Q2

REPORT INFORMATION
  Report Type: 
  Country: None (occurrence: None)
  Receive Date: 20070410
  Receipt Date: 20070403
  Transmission Date: 20071010
  Serious: Yes (Other)
  Sender: FDA-Public Use
  Company Number: A0641384A

PATIENT
  Age: 64 Year
  Sex: Male

DRUGS (1)
  1. COREG [Suspect]
     Indication: DRUG USE FOR UNKNOWN INDICATION
     Dosage: ORAL
     Route: 048

REACTIONS (4)
  - DRUG DEPENDENCE [None]
  - HEART RATE IRREGULAR [None]
  - HYPERTENSION [None]
  - SYNCOPE [None]
